FAERS Safety Report 15333877 (Version 4)
Quarter: 2018Q3

REPORT INFORMATION
  Report Type: Spontaneous
  Country: US (occurrence: US)
  Receive Date: 20180830
  Receipt Date: 20180912
  Transmission Date: 20181010
  Serious: Yes (Hospitalization)
  Sender: FDA-Public Use
  Company Number: US-UNITED THERAPEUTICS-UNT-2018-013444

PATIENT
  Age: 53 Year
  Sex: Female
  Weight: 129.71 kg

DRUGS (5)
  1. OPSUMIT [Concomitant]
     Active Substance: MACITENTAN
     Indication: PRODUCT USED FOR UNKNOWN INDICATION
     Route: 065
  2. REMODULIN [Suspect]
     Active Substance: TREPROSTINIL
     Indication: PULMONARY ARTERIAL HYPERTENSION
     Dosage: 0.004 ?G/KG, CONTINUING
     Route: 058
     Dates: start: 20180817
  3. UPTRAVI [Suspect]
     Active Substance: SELEXIPAG
     Indication: PRODUCT USED FOR UNKNOWN INDICATION
     Dosage: 800 ?G, UNK
     Route: 065
  4. REMODULIN [Suspect]
     Active Substance: TREPROSTINIL
     Dosage: 0.006 ?G/KG, CONTINUING, RATE OF 0.004 ML/HR
     Route: 058
     Dates: start: 20180822
  5. REMODULIN [Suspect]
     Active Substance: TREPROSTINIL
     Indication: PULMONARY HYPERTENSION
     Dosage: 0.0025 ?G/KG, CONTINUING
     Route: 058
     Dates: start: 201808

REACTIONS (16)
  - Heart rate increased [Recovered/Resolved]
  - Nausea [Unknown]
  - Myalgia [Unknown]
  - Neck pain [Unknown]
  - Diarrhoea [Not Recovered/Not Resolved]
  - Musculoskeletal pain [Unknown]
  - Pain [Unknown]
  - Abdominal discomfort [Unknown]
  - Erythema [Unknown]
  - Back pain [Unknown]
  - Infusion site pain [Not Recovered/Not Resolved]
  - Abdominal pain [Unknown]
  - Dizziness [Unknown]
  - Vomiting [Unknown]
  - Flushing [Unknown]
  - Headache [Not Recovered/Not Resolved]

NARRATIVE: CASE EVENT DATE: 2018
